FAERS Safety Report 15565792 (Version 1)
Quarter: 2018Q4

REPORT INFORMATION
  Report Type: Spontaneous
  Country: CA (occurrence: CA)
  Receive Date: 20181030
  Receipt Date: 20181030
  Transmission Date: 20190205
  Serious: Yes (Life-Threatening, Hospitalization, Other)
  Sender: FDA-Public Use
  Company Number: CA-ALKEM LABORATORIES LIMITED-CA-ALKEM-2018-08699

PATIENT
  Age: 61 Year
  Sex: Female

DRUGS (3)
  1. MYCOPHENOLATE MOFETIL. [Suspect]
     Active Substance: MYCOPHENOLATE MOFETIL
     Indication: IMMUNE-MEDIATED NECROTISING MYOPATHY
     Dosage: 1 G, BID
     Route: 065
  2. IMMUNGLOBULIN [Concomitant]
     Indication: IMMUNE-MEDIATED NECROTISING MYOPATHY
     Dosage: UNKNOWN
     Route: 042
  3. ACICLOVIR [Concomitant]
     Active Substance: ACYCLOVIR
     Indication: IMMUNE-MEDIATED NECROTISING MYOPATHY
     Dosage: UNKNOWN
     Route: 065

REACTIONS (4)
  - Generalised tonic-clonic seizure [Recovered/Resolved]
  - Encephalopathy [Recovered/Resolved]
  - Neurotoxicity [Recovered/Resolved]
  - Status epilepticus [Recovered/Resolved]
